FAERS Safety Report 14091810 (Version 1)
Quarter: 2017Q4

REPORT INFORMATION
  Report Type: Spontaneous
  Country: IT (occurrence: IT)
  Receive Date: 20171016
  Receipt Date: 20171016
  Transmission Date: 20180321
  Serious: Yes (Hospitalization)
  Sender: FDA-Public Use
  Company Number: IT-ELI_LILLY_AND_COMPANY-IT201710002734

PATIENT
  Age: 72 Year
  Sex: Female

DRUGS (3)
  1. CYRAMZA [Suspect]
     Active Substance: RAMUCIRUMAB
     Indication: GASTRIC CANCER
     Dosage: 500 MG, CYCLICAL
     Route: 042
     Dates: start: 20170125
  2. PACLITAXEL. [Suspect]
     Active Substance: PACLITAXEL
     Indication: GASTRIC CANCER
     Dosage: 100 MG, CYCLICAL
     Route: 042
     Dates: start: 20170125, end: 20170330
  3. CYRAMZA [Suspect]
     Active Substance: RAMUCIRUMAB
     Dosage: 480 MG, CYCLICAL
     Route: 042
     Dates: end: 20170330

REACTIONS (5)
  - Respiratory failure [Recovered/Resolved]
  - Nausea [Recovered/Resolved]
  - Asthenia [Recovered/Resolved]
  - Asthenia [Recovered/Resolved]
  - Mucosal inflammation [Recovered/Resolved]

NARRATIVE: CASE EVENT DATE: 20170207
